FAERS Safety Report 4476512-1 (Version None)
Quarter: 2004Q4

REPORT INFORMATION
  Report Type: 
  Country: None (occurrence: None)
  Receive Date: 20041012
  Receipt Date: 20041001
  Transmission Date: 20050328
  Serious: Yes (Disabling)
  Sender: FDA-Public Use
  Company Number: 207643

PATIENT
  Age: 69 Year
  Sex: Female
  Weight: 91.2 kg

DRUGS (24)
  1. XOLAIR [Suspect]
     Indication: ASTHMA
     Dosage: 300 MG, Q2W, SUBCUTANEOUS
     Route: 058
     Dates: start: 20040621, end: 20040621
  2. ADVAIR (FLUTICASONE PROPIONATE, SALMETEROL XINAFOATE) [Concomitant]
  3. FLOVENT [Concomitant]
  4. PREDNISONE [Concomitant]
  5. SINGULAIR [Concomitant]
  6. PREVACID [Concomitant]
  7. POTASSIUM (POTASSIUM NOS) [Concomitant]
  8. ZOCOR [Concomitant]
  9. DIGOXIN [Concomitant]
  10. PLAVIX [Concomitant]
  11. ASPIRIN [Concomitant]
  12. AVAPRO [Concomitant]
  13. FUROSEMIDE [Concomitant]
  14. KLOR-CON [Concomitant]
  15. SLOW-FE (FERROUS SULFATE) [Concomitant]
  16. STARLIX [Concomitant]
  17. MULTIVITAMIN (MULTIVITAMINS NOS) [Concomitant]
  18. ATROVENT [Concomitant]
  19. CLONIDINE [Concomitant]
  20. HUMIBID LA (GUAIFENESIN) [Concomitant]
  21. XOPENEX [Concomitant]
  22. AZMACORT [Concomitant]
  23. SEREVENT [Concomitant]
  24. INSULIN [Concomitant]

REACTIONS (5)
  - BLINDNESS UNILATERAL [None]
  - BLOOD GLUCOSE INCREASED [None]
  - HAEMORRHAGE [None]
  - OPTIC ISCHAEMIC NEUROPATHY [None]
  - OPTIC NERVE DISORDER [None]
